FAERS Safety Report 10314513 (Version 1)
Quarter: 2014Q3

REPORT INFORMATION
  Report Type: Spontaneous
  Country: US (occurrence: None)
  Receive Date: 20140717
  Receipt Date: 20140717
  Transmission Date: 20150326
  Serious: Yes (Other)
  Sender: FDA-Public Use
  Company Number: UNT-2014-003041

PATIENT
  Age: 54 Year
  Sex: Female

DRUGS (1)
  1. ORENITRAM [Suspect]
     Active Substance: TREPROSTINIL
     Indication: PULMONARY ARTERIAL HYPERTENSION
     Route: 048
     Dates: start: 20140529

REACTIONS (7)
  - Diarrhoea [None]
  - Pain in jaw [None]
  - Pain [None]
  - Headache [None]
  - Neuralgia [None]
  - Unevaluable event [None]
  - Myalgia [None]

NARRATIVE: CASE EVENT DATE: 2014
